FAERS Safety Report 4321052-3 (Version None)
Quarter: 2004Q1

REPORT INFORMATION
  Report Type: 
  Country: None (occurrence: None)
  Receive Date: 20040315
  Receipt Date: 20030630
  Transmission Date: 20041129
  Serious: Yes (Other)
  Sender: FDA-Public Use
  Company Number: PHEH2002US06345

PATIENT
  Age: 54 Year
  Sex: Male

DRUGS (4)
  1. TRILEPTAL [Suspect]
     Indication: CONVULSION
     Dates: start: 20020401, end: 20020624
  2. TRILEPTAL [Concomitant]
     Dosage: 600 MG, BID, ORAL
     Route: 048
     Dates: start: 20020625, end: 20020702
  3. DEPAKOTE [Concomitant]
  4. FLUOXETINE [Concomitant]

REACTIONS (1)
  - CONVULSION [None]
